FAERS Safety Report 13026162 (Version 1)
Quarter: 2016Q4

REPORT INFORMATION
  Report Type: Spontaneous
  Country: US (occurrence: US)
  Receive Date: 20161213
  Receipt Date: 20161213
  Transmission Date: 20170207
  Serious: No
  Sender: FDA-Public Use
  Company Number: None

PATIENT
  Age: 61 Year
  Sex: Female
  Weight: 60.84 kg

DRUGS (2)
  1. SPIRONOLACTONE. [Concomitant]
     Active Substance: SPIRONOLACTONE
  2. BENZONATATE. [Suspect]
     Active Substance: BENZONATATE
     Indication: COUGH
     Dosage: I TOOK ONLY 1 PILL PRESCRIPTION HAD  30 FOR I CAPSULE (3XDAILY) BY MOUTH
     Route: 048
     Dates: start: 20161105, end: 20161105

REACTIONS (4)
  - Nausea [None]
  - Abdominal pain upper [None]
  - Retching [None]
  - Insomnia [None]

NARRATIVE: CASE EVENT DATE: 20161105
